FAERS Safety Report 17849435 (Version 1)
Quarter: 2020Q2

REPORT INFORMATION
  Report Type: Spontaneous
  Country: US (occurrence: US)
  Receive Date: 20200601
  Receipt Date: 20200601
  Transmission Date: 20200714
  Serious: Yes (Disabling)
  Sender: FDA-Public Use
  Company Number: None

PATIENT
  Age: 68 Year
  Sex: Female
  Weight: 72 kg

DRUGS (1)
  1. AMOXICILLIN/CLAVULANATE POTASSIUM [Suspect]
     Active Substance: AMOXICILLIN\CLAVULANATE POTASSIUM
     Indication: LOCALISED INFECTION
     Route: 048
     Dates: start: 20200102, end: 20200106

REACTIONS (8)
  - Hypoaesthesia [None]
  - Muscle spasms [None]
  - Arthralgia [None]
  - Tendon pain [None]
  - Headache [None]
  - Paraesthesia [None]
  - Myalgia [None]
  - Insomnia [None]

NARRATIVE: CASE EVENT DATE: 20200102
